FAERS Safety Report 7969195-7 (Version None)
Quarter: 2011Q4

REPORT INFORMATION
  Report Type: 
  Country: None (occurrence: None)
  Receive Date: 20111208
  Receipt Date: 20111128
  Transmission Date: 20120403
  Serious: Yes (Other)
  Sender: FDA-Public Use
  Company Number: 2011P1013759

PATIENT

DRUGS (6)
  1. VINCRISTINE [Concomitant]
  2. NEUPOGEN [Concomitant]
  3. PREDNISONE [Suspect]
     Indication: NON-HODGKIN'S LYMPHOMA
     Dosage: 100 MG/M^2;Q3W
  4. CYCLOPHOSPHAMIDE [Concomitant]
  5. DOXORUBICIN HCL [Concomitant]
  6. RITUXIMAB [Concomitant]

REACTIONS (1)
  - GASTROINTESTINAL HAEMORRHAGE [None]
